FAERS Safety Report 14190531 (Version 2)
Quarter: 2017Q4

REPORT INFORMATION
  Report Type: Report from Study
  Country: HU (occurrence: HU)
  Receive Date: 20171115
  Receipt Date: 20171124
  Transmission Date: 20180321
  Serious: Yes (Hospitalization)
  Sender: FDA-Public Use
  Company Number: PHHY2017HU164581

PATIENT
  Age: 70 Year
  Sex: Male

DRUGS (4)
  1. EUCREAS [Suspect]
     Active Substance: METFORMIN HYDROCHLORIDE\VILDAGLIPTIN
     Indication: TYPE 2 DIABETES MELLITUS
     Dosage: 2 DF (50MG OF VILDAGLIPTIN AND 1000MG OF METFORMIN), QD
     Route: 065
     Dates: start: 20171004, end: 20171031
  2. QUINAPRIL. [Concomitant]
     Active Substance: QUINAPRIL
     Indication: HYPERTENSION
     Dosage: 12.5 MG IN THE MORNING, 20 MG IN THE EVENING
     Route: 065
  3. EUCREAS [Suspect]
     Active Substance: METFORMIN HYDROCHLORIDE\VILDAGLIPTIN
     Indication: GLYCOSYLATED HAEMOGLOBIN INCREASED
  4. ENAPRIL [Suspect]
     Active Substance: ENALAPRIL
     Indication: HYPERTENSION
     Dosage: UNK
     Route: 065
     Dates: end: 20171031

REACTIONS (19)
  - Malaise [Recovered/Resolved with Sequelae]
  - Ventricular extrasystoles [Unknown]
  - Heart rate abnormal [Unknown]
  - Albumin urine present [Unknown]
  - Blood glucose increased [Unknown]
  - Lymphocyte count decreased [Unknown]
  - Monocyte count increased [Unknown]
  - Dysarthria [Recovered/Resolved with Sequelae]
  - Haemoglobin decreased [Unknown]
  - Blood lactate dehydrogenase increased [Unknown]
  - Activated partial thromboplastin time shortened [Unknown]
  - Glomerular filtration rate decreased [Unknown]
  - Arteriosclerosis [Recovered/Resolved with Sequelae]
  - White blood cell count increased [Unknown]
  - Neutrophil count increased [Unknown]
  - Slow speech [Recovered/Resolved with Sequelae]
  - C-reactive protein increased [Unknown]
  - Glucose urine present [Unknown]
  - Thrombin time prolonged [Unknown]

NARRATIVE: CASE EVENT DATE: 20171027
